FAERS Safety Report 13234212 (Version 1)
Quarter: 2017Q1

REPORT INFORMATION
  Report Type: Spontaneous
  Country: US (occurrence: US)
  Receive Date: 20170214
  Receipt Date: 20170214
  Transmission Date: 20170428
  Serious: Yes (Death)
  Sender: FDA-Public Use
  Company Number: None

PATIENT
  Age: 57 Year
  Sex: Female

DRUGS (1)
  1. MYCOPHENOLATE 500MG ACCORD HEALTHCARE, INC. [Suspect]
     Active Substance: MYCOPHENOLATE MOFETIL
     Indication: LUNG DISORDER
     Dosage: 3 TABLETS (1500MG) TWICE A DAY BY MOUTH
     Route: 048
     Dates: start: 20170213, end: 20170213

REACTIONS (1)
  - Death [None]

NARRATIVE: CASE EVENT DATE: 20170213
